FAERS Safety Report 15018432 (Version 1)
Quarter: 2018Q2

REPORT INFORMATION
  Report Type: Spontaneous
  Country: US (occurrence: US)
  Receive Date: 20180615
  Receipt Date: 20180615
  Transmission Date: 20180711
  Serious: No
  Sender: FDA-Public Use
  Company Number: US-MORTON GROVE PHARMACEUTICALS, INC.-2049507

PATIENT
  Age: 70 Year
  Sex: Female
  Weight: 77.27 kg

DRUGS (5)
  1. NEURONTIN [Concomitant]
     Active Substance: GABAPENTIN
  2. PRILOSEC [Concomitant]
     Active Substance: OMEPRAZOLE MAGNESIUM
  3. TOPAMAX [Concomitant]
     Active Substance: TOPIRAMATE
  4. FLUTICASONE PROPIONATE NASAL SPRAY USP, 50 MCG/SPRAY [Suspect]
     Active Substance: FLUTICASONE PROPIONATE
     Indication: RHINITIS ALLERGIC
     Route: 045
     Dates: start: 20180525, end: 20180603
  5. PREDNISOLONE. [Concomitant]
     Active Substance: PREDNISOLONE

REACTIONS (2)
  - Dry eye [Recovered/Resolved]
  - Headache [Recovered/Resolved]
